FAERS Safety Report 19497567 (Version 1)
Quarter: 2021Q3

REPORT INFORMATION
  Report Type: Report from Study
  Country: US (occurrence: US)
  Receive Date: 20210706
  Receipt Date: 20210706
  Transmission Date: 20211014
  Serious: Yes (Death, Other)
  Sender: FDA-Public Use
  Company Number: US-SA-2019SA020104

PATIENT
  Age: 65 Year
  Sex: Female

DRUGS (22)
  1. OZEMPIC [Concomitant]
     Active Substance: SEMAGLUTIDE
  2. DOK [Concomitant]
     Active Substance: DOCUSATE SODIUM
  3. MUCUS RELIEF [Concomitant]
     Active Substance: GUAIFENESIN
  4. BUPRENORPHINE. [Concomitant]
     Active Substance: BUPRENORPHINE
  5. CILOSTAZOL. [Concomitant]
     Active Substance: CILOSTAZOL
  6. CLINDAMYCIN HCL [Concomitant]
     Active Substance: CLINDAMYCIN HYDROCHLORIDE
  7. ROSUVASTATIN. [Concomitant]
     Active Substance: ROSUVASTATIN
  8. TRAMADOL. [Concomitant]
     Active Substance: TRAMADOL
     Dosage: UNK MG
  9. SENNA TABS [Concomitant]
     Active Substance: SENNOSIDES A AND B
  10. FOLIC ACID. [Concomitant]
     Active Substance: FOLIC ACID
  11. SENTYL [Concomitant]
  12. DUPILUMAB [Suspect]
     Active Substance: DUPILUMAB
     Dosage: 300 MG, QOW
     Route: 058
     Dates: start: 201901
  13. MUPIROCIN. [Concomitant]
     Active Substance: MUPIROCIN
  14. DUPILUMAB [Suspect]
     Active Substance: DUPILUMAB
     Indication: ASTHMA
     Dosage: 600 MG, 1X
     Route: 058
     Dates: start: 20190112, end: 20190112
  15. ELIQUIS [Concomitant]
     Active Substance: APIXABAN
  16. TOUJEO [Concomitant]
     Active Substance: INSULIN GLARGINE
  17. MONTELUKAST SODIUM. [Concomitant]
     Active Substance: MONTELUKAST SODIUM
  18. OXYBUTYNIN. [Concomitant]
     Active Substance: OXYBUTYNIN CHLORIDE
  19. ONDANSETRON [Concomitant]
     Active Substance: ONDANSETRON
  20. METOPROLOL TARTRATE. [Concomitant]
     Active Substance: METOPROLOL TARTRATE
  21. PREGABALIN. [Concomitant]
     Active Substance: PREGABALIN
  22. ADVAIR HFA [Concomitant]
     Active Substance: FLUTICASONE PROPIONATE\SALMETEROL XINAFOATE

REACTIONS (8)
  - Sepsis [Fatal]
  - Product use issue [Unknown]
  - Septic shock [Fatal]
  - Dependence on respirator [Fatal]
  - Acute kidney injury [Fatal]
  - Multiple organ dysfunction syndrome [Fatal]
  - Cough [Not Recovered/Not Resolved]
  - Urinary tract infection [Fatal]

NARRATIVE: CASE EVENT DATE: 201901
